FAERS Safety Report 25500374 (Version 1)
Quarter: 2025Q3

REPORT INFORMATION
  Report Type: Spontaneous
  Country: US (occurrence: US)
  Receive Date: 20250701
  Receipt Date: 20250701
  Transmission Date: 20251021
  Serious: Yes (Other)
  Sender: ORGANON
  Company Number: US-ORGANON-O2506USA002745

PATIENT
  Sex: Female
  Weight: 121.09 kg

DRUGS (1)
  1. NEXPLANON [Suspect]
     Active Substance: ETONOGESTREL
     Route: 059
     Dates: start: 20250326

REACTIONS (5)
  - Gastric operation [Unknown]
  - Complication associated with device [Unknown]
  - Device expulsion [Unknown]
  - Weight increased [Unknown]
  - Skin hypertrophy [Unknown]

NARRATIVE: CASE EVENT DATE: 20250101
